FAERS Safety Report 14497117 (Version 2)
Quarter: 2018Q1

REPORT INFORMATION
  Report Type: Report from Study
  Country: None (occurrence: CA)
  Receive Date: 20180207
  Receipt Date: 20180312
  Transmission Date: 20180509
  Serious: Yes (Hospitalization, Other)
  Sender: FDA-Public Use
  Company Number: CA-ABBVIE-18K-028-2248113-00

PATIENT
  Sex: Female

DRUGS (2)
  1. HUMIRA [Suspect]
     Active Substance: ADALIMUMAB
     Indication: CROHN^S DISEASE
     Route: 058
     Dates: start: 20170315, end: 2018
  2. HUMIRA [Suspect]
     Active Substance: ADALIMUMAB
     Route: 058
     Dates: start: 201802, end: 20180220

REACTIONS (9)
  - Intestinal obstruction [Recovered/Resolved]
  - Intestinal dilatation [Unknown]
  - Exposure during pregnancy [Unknown]
  - Dysuria [Unknown]
  - Crohn^s disease [Unknown]
  - Intra-abdominal fluid collection [Unknown]
  - Ileal stenosis [Unknown]
  - Anal abscess [Unknown]
  - Urinary tract infection [Not Recovered/Not Resolved]

NARRATIVE: CASE EVENT DATE: 2018
